FAERS Safety Report 21299948 (Version 1)
Quarter: 2022Q3

REPORT INFORMATION
  Report Type: Report from Study
  Country: DE (occurrence: DE)
  Receive Date: 20220906
  Receipt Date: 20220906
  Transmission Date: 20221027
  Serious: Yes (Other)
  Sender: FDA-Public Use
  Company Number: DE-GLAXOSMITHKLINE-DECH2022GSK031508

PATIENT

DRUGS (1)
  1. DICLOFENAC [Suspect]
     Active Substance: DICLOFENAC
     Indication: Rheumatoid arthritis
     Dosage: UNK UNK, QD, 150-225
     Route: 064

REACTIONS (4)
  - Ductus arteriosus premature closure [Unknown]
  - Tricuspid valve incompetence [Unknown]
  - Ventricular hypertrophy [Unknown]
  - Foetal exposure during pregnancy [Unknown]
